FAERS Safety Report 15890237 (Version 2)
Quarter: 2019Q1

REPORT INFORMATION
  Report Type: Report from Study
  Country: None (occurrence: CA)
  Receive Date: 20190130
  Receipt Date: 20190218
  Transmission Date: 20190417
  Serious: Yes (Death, Other)
  Sender: FDA-Public Use
  Company Number: CA-ABBVIE-19K-028-2641838-00

PATIENT
  Age: 62 Year
  Sex: Male
  Weight: 41 kg

DRUGS (1)
  1. VENCLEXTA [Suspect]
     Active Substance: VENETOCLAX
     Indication: CHRONIC LYMPHOCYTIC LEUKAEMIA
     Route: 048
     Dates: end: 20190104

REACTIONS (3)
  - Death [Fatal]
  - Pneumonia [Unknown]
  - Metastases to lung [Unknown]

NARRATIVE: CASE EVENT DATE: 20190102
